FAERS Safety Report 7594923-2 (Version None)
Quarter: 2011Q3

REPORT INFORMATION
  Report Type: 
  Country: None (occurrence: None)
  Receive Date: 20110707
  Receipt Date: 20110701
  Transmission Date: 20111222
  Serious: Yes (Hospitalization)
  Sender: FDA-Public Use
  Company Number: US-TEVA-280750USA

PATIENT
  Sex: Male

DRUGS (4)
  1. METFORMIN HYDROCHLORIDE [Suspect]
  2. OSTEO BI-FLEX [Concomitant]
     Dosage: TWO
  3. FISH OIL [Concomitant]
     Dosage: 1000 MG IN AM
  4. DIOVAN HCT [Concomitant]
     Dosage: ONE, 320-25MG

REACTIONS (3)
  - SEPSIS [None]
  - PNEUMONIA [None]
  - HYPOTENSION [None]
